FAERS Safety Report 8717952 (Version 2)
Quarter: 2012Q4

REPORT INFORMATION
  Report Type: 
  Country: US (occurrence: US)
  Receive Date: 20120810
  Receipt Date: 20120829
  Transmission Date: 20130627
  Serious: Yes (Other)
  Sender: FDA-Public Use
  Company Number: US-PFIZER INC-2012192028

PATIENT
  Age: 56 Year
  Sex: Female
  Weight: 81.63 kg

DRUGS (7)
  1. LYRICA [Suspect]
     Indication: FIBROMYALGIA
     Dosage: 25 mg, UNK
     Dates: start: 2007
  2. LYRICA [Suspect]
     Dosage: 50 mg, 3x/day
  3. LYRICA [Suspect]
     Dosage: 75 mg, 3x/day
     Dates: start: 2012
  4. METFORMIN [Concomitant]
     Indication: DIABETES MELLITUS
     Dosage: 500 mg, 3x/day
  5. SEROQUEL [Concomitant]
     Indication: BIPOLAR I DISORDER
     Dosage: 300 mg, daily at night
  6. HYDROCHLOROTHIAZIDE [Concomitant]
     Indication: HYPERTENSION
     Dosage: 0.5 mg, daily
  7. ZESTRIL [Concomitant]
     Indication: HYPERTENSION
     Dosage: 20 mg, daily

REACTIONS (2)
  - Vision blurred [Not Recovered/Not Resolved]
  - Visual impairment [Not Recovered/Not Resolved]
